FAERS Safety Report 23681315 (Version 1)
Quarter: 2024Q1

REPORT INFORMATION
  Report Type: Spontaneous
  Country: JP (occurrence: JP)
  Receive Date: 20240328
  Receipt Date: 20240328
  Transmission Date: 20240410
  Serious: Yes (Hospitalization, Other)
  Sender: FDA-Public Use
  Company Number: JP-NBI-BS202400055

PATIENT
  Age: 81 Year
  Sex: Male

DRUGS (1)
  1. DABIGATRAN ETEXILATE MESYLATE [Suspect]
     Active Substance: DABIGATRAN ETEXILATE MESYLATE
     Indication: Atrial fibrillation
     Route: 048

REACTIONS (4)
  - Gastrointestinal necrosis [Unknown]
  - Peritonitis [Unknown]
  - Septic shock [Unknown]
  - Coagulopathy [Unknown]
